FAERS Safety Report 10258028 (Version 1)
Quarter: 2014Q2

REPORT INFORMATION
  Report Type: Spontaneous
  Country: US (occurrence: US)
  Receive Date: 20140625
  Receipt Date: 20140625
  Transmission Date: 20141212
  Serious: No
  Sender: FDA-Public Use
  Company Number: US-PFIZER INC-2014171337

PATIENT
  Sex: 0

DRUGS (1)
  1. NORVASC [Suspect]
     Dosage: 5 MG, 2X/DAY

REACTIONS (1)
  - Off label use [Unknown]
